FAERS Safety Report 21805726 (Version 1)
Quarter: 2023Q1

REPORT INFORMATION
  Report Type: Spontaneous
  Country: US (occurrence: US)
  Receive Date: 20230102
  Receipt Date: 20230102
  Transmission Date: 20230418
  Serious: No
  Sender: FDA-Public Use
  Company Number: US-drreddys-SPO/USA/22/0158878

PATIENT
  Age: 77 Year
  Sex: Male

DRUGS (5)
  1. LENALIDOMIDE [Suspect]
     Active Substance: LENALIDOMIDE
     Indication: Follicular lymphoma stage II
     Dosage: TAKE 1 WHOLE CAPSULE BY MOUTH WITH WATER AT THE SAME TIME EVERY DAY ON DAYS 1-21 OF EACH 28 DAY CYCL
     Route: 048
     Dates: start: 20221108
  2. OMEPRAZOLE [Concomitant]
     Active Substance: OMEPRAZOLE
     Indication: Product used for unknown indication
  3. SINGULAIR TAB 10MG [Concomitant]
     Indication: Product used for unknown indication
  4. METHYLPREDNI TBP 4MG [Concomitant]
     Indication: Product used for unknown indication
  5. RITUXAN SOL 100MG/10ML [Concomitant]
     Indication: Product used for unknown indication

REACTIONS (2)
  - Mouth ulceration [Recovered/Resolved]
  - Rash [Recovered/Resolved]
